FAERS Safety Report 7300977-0 (Version None)
Quarter: 2010Q4

REPORT INFORMATION
  Report Type: 
  Country: None (occurrence: None)
  Receive Date: 20101230
  Receipt Date: 20100706
  Transmission Date: 20110411
  Serious: Yes (Other)
  Sender: FDA-Public Use
  Company Number: 20100309

PATIENT
  Age: 35 Year
  Sex: Female
  Weight: 48.5349 kg

DRUGS (2)
  1. VENOFER [Suspect]
     Indication: IRON DEFICIENCY ANAEMIA
     Dosage: 300 MG IN 250 NS OVER, 90 MINS. INTRAVENOUS
     Route: 042
     Dates: start: 20100617, end: 20100701
  2. SYNTHROID [Concomitant]

REACTIONS (2)
  - ANAPHYLACTIC REACTION [None]
  - JOINT SWELLING [None]
